FAERS Safety Report 6473287-1 (Version None)
Quarter: 2009Q4

REPORT INFORMATION
  Report Type: 
  Country: None (occurrence: None)
  Receive Date: 20091204
  Receipt Date: 20081013
  Transmission Date: 20100525
  Serious: Yes (Other)
  Sender: FDA-Public Use
  Company Number: US-ELI_LILLY_AND_COMPANY-US200809003756

PATIENT
  Sex: Female

DRUGS (10)
  1. FORTEO [Suspect]
     Indication: OSTEOPOROSIS
     Dosage: 20 UG, DAILY (1/D)
     Dates: start: 20070101, end: 20080701
  2. FORTEO [Suspect]
     Dosage: 20 UG, DAILY (1/D)
     Dates: start: 20080701
  3. MORPHINE SULFATE [Concomitant]
     Dosage: 30 MG, 3/D
  4. OXYCODONE HCL [Concomitant]
     Dosage: 30 MG, EVERY 4 HRS
  5. CLONOPIN [Concomitant]
     Dosage: 1 MG, 3/D
  6. AMBIEN [Concomitant]
     Dosage: 10 MG, EACH EVENING
  7. NEXIUM [Concomitant]
     Dosage: 40 MG, DAILY (1/D)
  8. ERGOCALCIFEROL [Concomitant]
     Dosage: UNK, UNK
     Dates: end: 20080701
  9. ERGOCALCIFEROL [Concomitant]
     Dosage: 50000 U, WEEKLY (1/W)
     Dates: start: 20080701
  10. DURAGESIC-100 [Concomitant]

REACTIONS (6)
  - AMNESIA [None]
  - HEADACHE [None]
  - MUSCULOSKELETAL DISCOMFORT [None]
  - PANCREATITIS CHRONIC [None]
  - PNEUMONIA [None]
  - VITAMIN D ABNORMAL [None]
